FAERS Safety Report 7895428-1 (Version None)
Quarter: 2011Q4

REPORT INFORMATION
  Report Type: 
  Country: None (occurrence: None)
  Receive Date: 20111106
  Receipt Date: 20110826
  Transmission Date: 20120403
  Serious: No
  Sender: FDA-Public Use
  Company Number: US-AMGEN-USASP2011043820

PATIENT
  Age: 94 Year
  Sex: Female

DRUGS (22)
  1. DETROL LA [Concomitant]
     Dosage: 4 MG, UNK
  2. VITAMIN B6 [Concomitant]
     Dosage: 50 MG, UNK
  3. CALTRATE + D                       /00188401/ [Concomitant]
     Dosage: UNK
  4. VOLTAREN [Concomitant]
     Dosage: UNK
  5. DILANTIN [Concomitant]
     Dosage: 100 MG, UNK
  6. SAVELLA [Concomitant]
     Dosage: 50 MG, UNK
  7. PERCOCET [Concomitant]
     Dosage: 5-325 MG
  8. CASCARA SAGRADA                    /00143201/ [Concomitant]
     Dosage: UNK
  9. FOLIC ACID [Concomitant]
     Dosage: 1 MG, UNK
  10. OCUVITE                            /01053801/ [Concomitant]
     Dosage: UNK
  11. IRON [Concomitant]
     Dosage: 25 MG, UNK
  12. BENEFIBER                          /00677201/ [Concomitant]
     Dosage: UNK
  13. ENBREL [Suspect]
     Indication: PRODUCT USED FOR UNKNOWN INDICATION
     Dosage: 25 MG, TWICE WEEKLY
     Route: 058
  14. VITAMIN B12                        /00056201/ [Concomitant]
     Dosage: 1000 CR
  15. COD LIVER OIL [Concomitant]
     Dosage: UNK
  16. PREDNISONE [Concomitant]
     Dosage: 5 MG, UNK
  17. FLUOXETINE HCL [Concomitant]
     Dosage: 20 MG, UNK
  18. MAGNESIUM [Concomitant]
     Dosage: 250 MG, UNK
  19. COLACE [Concomitant]
     Dosage: 100 MG, UNK
  20. MULTIPLE VITAMINS [Concomitant]
     Dosage: UNK
  21. BYSTOLIC [Concomitant]
     Dosage: 10 MG, UNK
  22. LEXAPRO [Concomitant]
     Dosage: 20 MG, UNK

REACTIONS (1)
  - URINARY TRACT INFECTION [None]
